FAERS Safety Report 8034124-7 (Version None)
Quarter: 2012Q1

REPORT INFORMATION
  Report Type: 
  Country: None (occurrence: None)
  Receive Date: 20120110
  Receipt Date: 20120109
  Transmission Date: 20120608
  Serious: Yes (Hospitalization)
  Sender: FDA-Public Use
  Company Number: US-ACTELION-A-US2010-40140

PATIENT

DRUGS (5)
  1. TRACLEER [Suspect]
     Indication: PULMONARY ARTERIAL HYPERTENSION
     Dosage: UNK
     Route: 048
     Dates: start: 20070504, end: 20091019
  2. COUMADIN [Concomitant]
  3. FENTANYL [Suspect]
  4. VENTAVIS [Suspect]
     Indication: PULMONARY ARTERIAL HYPERTENSION
     Dosage: 20
     Route: 055
     Dates: start: 20080812
  5. REVATIO [Concomitant]

REACTIONS (8)
  - DIZZINESS [None]
  - SYNCOPE [None]
  - TOOTH INFECTION [None]
  - LOCALISED INFECTION [None]
  - PULMONARY ARTERIAL HYPERTENSION [None]
  - CONDITION AGGRAVATED [None]
  - COUGH [None]
  - HYPERSENSITIVITY [None]
